FAERS Safety Report 9384848 (Version 1)
Quarter: 2013Q3

REPORT INFORMATION
  Report Type: Spontaneous
  Country: CN (occurrence: CN)
  Receive Date: 20130705
  Receipt Date: 20130705
  Transmission Date: 20140515
  Serious: Yes (Hospitalization, Other)
  Sender: FDA-Public Use
  Company Number: CN-BAYER-2013-080822

PATIENT
  Age: 63 Year
  Sex: Male

DRUGS (4)
  1. ACETYLSALICYLIC ACID [Suspect]
     Dosage: 100 MG, QD
  2. SUNITINIB [Suspect]
     Indication: METASTASES TO LUNG
     Dosage: 37.5 MG, QD
  3. AMLODIPINE BESYLATE [Concomitant]
     Dosage: 5 MG, QD
  4. VALSARTAN [Concomitant]
     Indication: HYPERTENSION
     Dosage: 80 MG, QD

REACTIONS (8)
  - Oesophagitis [Recovered/Resolved]
  - Haematemesis [Recovered/Resolved]
  - Anaemia [Recovered/Resolved]
  - Oesophageal haemorrhage [Recovered/Resolved]
  - Hypertension [None]
  - Diarrhoea [None]
  - Palmar-plantar erythrodysaesthesia syndrome [None]
  - Stomatitis [None]
